FAERS Safety Report 6359358-9 (Version None)
Quarter: 2009Q3

REPORT INFORMATION
  Report Type: 
  Country: None (occurrence: None)
  Receive Date: 20090917
  Receipt Date: 20090915
  Transmission Date: 20100115
  Serious: Yes (Other)
  Sender: FDA-Public Use
  Company Number: BR-BRISTOL-MYERS SQUIBB COMPANY-14722227

PATIENT
  Age: 46 Year
  Sex: Female
  Weight: 89 kg

DRUGS (1)
  1. APROZIDE [Suspect]
     Indication: HYPERTENSION
     Dosage: 1 DF = 1 TAB. STRENGTH-150MG TAB.APROZIDE TABS 300/12.5 MG
     Route: 048
     Dates: start: 20090501, end: 20090501

REACTIONS (4)
  - BLOOD PRESSURE INCREASED [None]
  - FEELING ABNORMAL [None]
  - PRESYNCOPE [None]
  - VISUAL IMPAIRMENT [None]
